FAERS Safety Report 11685476 (Version 4)
Quarter: 2016Q1

REPORT INFORMATION
  Report Type: Spontaneous
  Country: JP (occurrence: JP)
  Receive Date: 20151030
  Receipt Date: 20160114
  Transmission Date: 20160525
  Serious: Yes (Death, Life-Threatening, Hospitalization, Other)
  Sender: FDA-Public Use
  Company Number: JP-BRISTOL-MYERS SQUIBB COMPANY-BMS-2015-074807

PATIENT
  Age: 90 Year
  Sex: Female
  Weight: 33 kg

DRUGS (1)
  1. ELIQUIS [Suspect]
     Active Substance: APIXABAN
     Indication: CEREBROVASCULAR ACCIDENT PROPHYLAXIS
     Dosage: 2.5 MG, BID
     Route: 048
     Dates: end: 20150927

REACTIONS (2)
  - Cerebellar haemorrhage [Fatal]
  - Pneumonia [Fatal]

NARRATIVE: CASE EVENT DATE: 20150928
